FAERS Safety Report 14859214 (Version 3)
Quarter: 2018Q3

REPORT INFORMATION
  Report Type: Report from Study
  Country: US (occurrence: US)
  Receive Date: 20180508
  Receipt Date: 20180821
  Transmission Date: 20181010
  Serious: Yes (Death, Other)
  Sender: FDA-Public Use
  Company Number: US-CIPLA (EU) LIMITED-2018US17219

PATIENT

DRUGS (10)
  1. PACLITAXEL. [Suspect]
     Active Substance: PACLITAXEL
     Dosage: CYCLE 2 DAY DOSE REDUCED
  2. GEMCITABINE [Suspect]
     Active Substance: GEMCITABINE\GEMCITABINE HYDROCHLORIDE
     Dosage: CYCLE 2 DAY 8 DOSE REDUCED
  3. GEMCITABINE [Suspect]
     Active Substance: GEMCITABINE\GEMCITABINE HYDROCHLORIDE
     Dosage: CYCLE 1 DAY 8 DOSE REDUCED
  4. PEMBROLIZUMAB. [Suspect]
     Active Substance: PEMBROLIZUMAB
     Indication: ADENOCARCINOMA PANCREAS
     Dosage: 2 MG/KG, OVER 30 MIN EVERY 21 DAYS
     Route: 042
  5. PACLITAXEL. [Suspect]
     Active Substance: PACLITAXEL
     Indication: ADENOCARCINOMA PANCREAS
     Dosage: 125 MG/M2, ON DAYS 1 AND 8 EVERY 21 DAYS
  6. PACLITAXEL. [Suspect]
     Active Substance: PACLITAXEL
     Dosage: CYCLE 1 DAY 8 DOSE REDUCED
  7. PEMBROLIZUMAB. [Suspect]
     Active Substance: PEMBROLIZUMAB
     Dosage: UNK
  8. GEMCITABINE [Suspect]
     Active Substance: GEMCITABINE\GEMCITABINE HYDROCHLORIDE
     Dosage: CYCLE 3 DAY 8 DOSE REDUCED
  9. PACLITAXEL. [Suspect]
     Active Substance: PACLITAXEL
     Dosage: CYCLE 3 DAY 8 DOSE REDUCED
  10. GEMCITABINE [Suspect]
     Active Substance: GEMCITABINE\GEMCITABINE HYDROCHLORIDE
     Indication: ADENOCARCINOMA PANCREAS
     Dosage: 1000 MG/M2, ON DAYS 1 AND 8 EVERY 21 DAYS

REACTIONS (11)
  - Stomatitis [Unknown]
  - Death [Fatal]
  - Thrombocytopenia [Unknown]
  - Epistaxis [Unknown]
  - Neutropenia [Unknown]
  - Pyrexia [Unknown]
  - Anaemia [Unknown]
  - White blood cell count decreased [Unknown]
  - Presyncope [Unknown]
  - Alanine aminotransferase increased [Unknown]
  - Fatigue [Unknown]
